FAERS Safety Report 7288871-5 (Version None)
Quarter: 2011Q1

REPORT INFORMATION
  Report Type: 
  Country: None (occurrence: None)
  Receive Date: 20110201
  Receipt Date: 20110118
  Transmission Date: 20110831
  Serious: Yes (Other)
  Sender: FDA-Public Use
  Company Number: DSU-2011-00426

PATIENT
  Age: 59 Year
  Sex: Female
  Weight: 81.6475 kg

DRUGS (12)
  1. OMEGA 3 FATTY ACIDS [Concomitant]
  2. AMITRIPTYLINE [Concomitant]
  3. HYDROCHLOROTHIAZIDE [Concomitant]
  4. NOVOLOG MIX 70/30 [Concomitant]
  5. NIACIN [Concomitant]
  6. PRAVASTATIN [Concomitant]
  7. BENICAR [Suspect]
     Indication: HYPERTENSION
     Dosage: 40 MG (40 MG, QD, PER ORAL; 80 MG (80 MG, 2 TABLETS QD, PER ORAL
     Route: 048
     Dates: start: 20100101
  8. BENICAR [Suspect]
     Indication: HYPERTENSION
     Dosage: 40 MG (40 MG, QD, PER ORAL; 80 MG (80 MG, 2 TABLETS QD, PER ORAL
     Route: 048
     Dates: start: 20080101, end: 20100101
  9. GARLIC OIL (ALLIUM SATIVUM OIL) [Concomitant]
  10. DOXAZOSIN [Concomitant]
  11. METOPROLOL [Concomitant]
  12. ASPIRIN [Concomitant]

REACTIONS (4)
  - STRESS [None]
  - BLOOD PRESSURE INCREASED [None]
  - BLOOD PHOSPHORUS INCREASED [None]
  - BILIARY CIRRHOSIS PRIMARY [None]
